FAERS Safety Report 7423775-6 (Version None)
Quarter: 2011Q2

REPORT INFORMATION
  Report Type: 
  Country: None (occurrence: None)
  Receive Date: 20110419
  Receipt Date: 20110412
  Transmission Date: 20111010
  Serious: Yes (Hospitalization)
  Sender: FDA-Public Use
  Company Number: US-B.I. PHARMACEUTICALS,INC./RIDGEFIELD-2011-BP-07446BP

PATIENT
  Age: 89 Year
  Sex: Female
  Weight: 61.23 kg

DRUGS (2)
  1. PRADAXA [Suspect]
     Dosage: 150 MG
     Route: 048
  2. PRADAXA [Suspect]
     Dosage: 300 MG
     Route: 048
     Dates: end: 20110307

REACTIONS (5)
  - GASTROINTESTINAL HAEMORRHAGE [None]
  - MELAENA [None]
  - MOUTH HAEMORRHAGE [None]
  - OCCULT BLOOD POSITIVE [None]
  - HAEMATEMESIS [None]
